FAERS Safety Report 4417468-7 (Version None)
Quarter: 2004Q3

REPORT INFORMATION
  Report Type: 
  Country: None (occurrence: None)
  Receive Date: 20040803
  Receipt Date: 20040722
  Transmission Date: 20050211
  Serious: Yes (Death)
  Sender: FDA-Public Use
  Company Number: T02-USA-02709-01

PATIENT
  Age: 12 Day
  Sex: Male
  Weight: 0.725 kg

DRUGS (12)
  1. INFASURF PRESERVATIVE FREE [Suspect]
     Indication: ACUTE RESPIRATORY DISTRESS SYNDROME
     Dates: start: 20021020, end: 20021022
  2. DOPAMINE HCL [Concomitant]
  3. DOBUTAMINE [Concomitant]
  4. HYDROCORTISONE [Concomitant]
  5. VANCOMYCIN [Concomitant]
  6. GENTAMYCIN SULFATE [Concomitant]
  7. CEFTAZIDIME [Concomitant]
  8. IMIPENEM [Concomitant]
  9. BLOOD TRANSFUSION [Concomitant]
  10. FRESH FROZEN PLATELETS [Concomitant]
  11. TPN [Concomitant]
  12. IV FLUIDS [Concomitant]

REACTIONS (21)
  - ACIDOSIS [None]
  - ANAEMIA NEONATAL [None]
  - BACTERIAL SEPSIS [None]
  - BLOOD PRESSURE DECREASED [None]
  - COAGULOPATHY [None]
  - GENERAL PHYSICAL HEALTH DETERIORATION [None]
  - HAEMATOCRIT DECREASED [None]
  - HEART RATE INCREASED [None]
  - HYPERBILIRUBINAEMIA [None]
  - HYPOGLYCAEMIA [None]
  - HYPOPERFUSION [None]
  - ILEUS [None]
  - LEUKOPENIA [None]
  - LUNG DISORDER [None]
  - METABOLIC ACIDOSIS [None]
  - PSEUDOMONAS INFECTION [None]
  - PULMONARY HYPERTENSION [None]
  - RENAL FAILURE ACUTE [None]
  - RESPIRATORY RATE INCREASED [None]
  - THROMBOCYTOPENIA [None]
  - VENTRICULAR DYSFUNCTION [None]
